FAERS Safety Report 10687485 (Version 2)
Quarter: 2015Q1

REPORT INFORMATION
  Report Type: Spontaneous
  Country: US (occurrence: US)
  Receive Date: 20150102
  Receipt Date: 20150320
  Transmission Date: 20150720
  Serious: Yes (Other)
  Sender: FDA-Public Use
  Company Number: US-BAYER-2014-191180

PATIENT
  Age: 48 Year
  Sex: Female
  Weight: 129.25 kg

DRUGS (1)
  1. MIRENA [Suspect]
     Active Substance: LEVONORGESTREL
     Indication: MENORRHAGIA
     Dosage: 20 MCG/24HR, CONT
     Route: 015
     Dates: start: 2005, end: 2010

REACTIONS (7)
  - Abdominal pain [None]
  - Dysstasia [None]
  - Pain [None]
  - Device dislocation [None]
  - Injury [None]
  - Gait disturbance [None]
  - Dyspareunia [None]

NARRATIVE: CASE EVENT DATE: 2010
